FAERS Safety Report 8571060-1 (Version None)
Quarter: 2012Q3

REPORT INFORMATION
  Report Type: 
  Country: None (occurrence: None)
  Receive Date: 20120806
  Receipt Date: 20120725
  Transmission Date: 20120928
  Serious: Yes (Life-Threatening, Hospitalization, Disabling, Other)
  Sender: FDA-Public Use
  Company Number: GB-ACCORD-014250

PATIENT
  Age: 90 Year
  Sex: Female

DRUGS (5)
  1. OXYCODONE HCL [Suspect]
     Dosage: 2.5-5 MG AS REQUIRED (PRN)
     Route: 048
     Dates: start: 20120628, end: 20120705
  2. MORPHINE SULFATE [Suspect]
     Dosage: PRN (TAKEN AS REQUIRED), NOT TAKEN BETWEEN 21-JUN-12 TO 27-JUN-12
     Route: 048
     Dates: start: 20120628, end: 20120628
  3. ONDANSETRON [Suspect]
     Indication: NAUSEA
     Dosage: PRN (TAKEN AS REQUIRED)
     Route: 048
     Dates: start: 20120628
  4. METOCLOPRAMIDE [Suspect]
     Indication: NAUSEA
     Route: 048
     Dates: start: 20120628, end: 20120710
  5. CLONAZEPAM [Suspect]
     Dosage: EVERY NIGHT
     Route: 048
     Dates: start: 20120630, end: 20120709

REACTIONS (1)
  - STEVENS-JOHNSON SYNDROME [None]
